FAERS Safety Report 20286455 (Version 1)
Quarter: 2022Q1

REPORT INFORMATION
  Report Type: Spontaneous
  Country: JP (occurrence: JP)
  Receive Date: 20220103
  Receipt Date: 20220103
  Transmission Date: 20220423
  Serious: Yes (Other)
  Sender: FDA-Public Use
  Company Number: JP-MLMSERVICE-2021122332847861

PATIENT
  Age: 49 Year
  Sex: Female

DRUGS (2)
  1. GEMCITABINE [Suspect]
     Active Substance: GEMCITABINE
     Indication: Pleural mesothelioma malignant
     Dosage: 3RD-LINE THERAPY IN JUN-201X+1, DISCONTINUED IN MARCH AFTER 9 COURSES
  2. IRINOTECAN [Suspect]
     Active Substance: IRINOTECAN
     Indication: Pleural mesothelioma malignant
     Dosage: 3RD-LINE THERAPY IN JUN-201X+1, DISCONTINUED IN MARCH AFTER 9 COURSES

REACTIONS (2)
  - Renal impairment [Unknown]
  - Condition aggravated [Unknown]
